FAERS Safety Report 15859862 (Version 5)
Quarter: 2019Q4

REPORT INFORMATION
  Report Type: Spontaneous
  Country: DE (occurrence: DE)
  Receive Date: 20190123
  Receipt Date: 20191127
  Transmission Date: 20200122
  Serious: Yes (Death, Hospitalization, Other)
  Sender: FDA-Public Use
  Company Number: PHHY2018DE166463

PATIENT
  Age: 68 Year
  Sex: Female

DRUGS (30)
  1. VITAMIN B-COMPLEX [Concomitant]
     Active Substance: DEXPANTHENOL\NIACINAMIDE\PYRIDOXINE HYDROCHLORIDE\RIBOFLAVIN 5^-PHOSPHATE SODIUM\THIAMINE HYDROCHLORIDE
     Indication: PRODUCT USED FOR UNKNOWN INDICATION
     Dosage: 1 DF, QD (DAILY DOSE: 1 DF DOSAGE FORM EVERY DAYS)
     Route: 065
  2. NEBILET [Concomitant]
     Active Substance: NEBIVOLOL
     Dosage: 1.5 MG, QD
     Route: 048
  3. NEBILET [Concomitant]
     Active Substance: NEBIVOLOL
     Dosage: 1.25 MG, QD
     Route: 048
  4. PARACETAMOL [Suspect]
     Active Substance: ACETAMINOPHEN
     Indication: PAIN IN EXTREMITY
     Dosage: 1500 MG, QD (DAILY DOSE: 1500 MG MILLGRAM(S) EVERY DAYS)
     Route: 048
     Dates: start: 20180314
  5. METHOTREXATE. [Suspect]
     Active Substance: METHOTREXATE
     Indication: LEUKAEMIA
     Dosage: 5 MG, QW (DAILY DOSE: 5 MG MILLGRAM(S) EVERY WEEKS)
     Route: 058
     Dates: start: 20180314
  6. VITAMIN B [Concomitant]
     Active Substance: VITAMIN B
     Indication: PRODUCT USED FOR UNKNOWN INDICATION
     Dosage: 1 DF, QD
     Route: 065
  7. IDEOS [Concomitant]
     Active Substance: CALCIUM CARBONATE\CHOLECALCIFEROL
     Indication: PRODUCT USED FOR UNKNOWN INDICATION
     Dosage: 1 DF, BID
     Route: 065
  8. PREDNISOLONE. [Concomitant]
     Active Substance: PREDNISOLONE
     Indication: INTERSTITIAL LUNG DISEASE
     Dosage: 5 MG, QD (5-0-0)
     Route: 048
  9. SYMBICORT [Concomitant]
     Active Substance: BUDESONIDE\FORMOTEROL FUMARATE DIHYDRATE
     Indication: PRODUCT USED FOR UNKNOWN INDICATION
     Dosage: 2 DF, BID  (2-0-2)
     Route: 048
     Dates: end: 2017
  10. VIGANTOLETTEN [Concomitant]
     Active Substance: CHOLECALCIFEROL
     Indication: PRODUCT USED FOR UNKNOWN INDICATION
     Dosage: 1000 IU, BID
     Route: 065
  11. PERFALGAN [Concomitant]
     Active Substance: ACETAMINOPHEN
     Indication: PRODUCT USED FOR UNKNOWN INDICATION
     Dosage: 1 G, TID
     Route: 065
  12. TRAMAL [Concomitant]
     Active Substance: TRAMADOL
     Indication: PRODUCT USED FOR UNKNOWN INDICATION
     Dosage: UNK
     Route: 065
  13. OXAZEPAM. [Concomitant]
     Active Substance: OXAZEPAM
     Indication: PRODUCT USED FOR UNKNOWN INDICATION
     Dosage: 5 MG, QD (0-0-0-5)
     Route: 048
  14. ELIQUIS [Concomitant]
     Active Substance: APIXABAN
     Indication: PRODUCT USED FOR UNKNOWN INDICATION
     Dosage: 5 MG, QD (2.5-0-2.5)
     Route: 048
  15. TRAMAL RETARD [Concomitant]
     Active Substance: TRAMADOL
     Indication: PAIN IN EXTREMITY
     Dosage: 100 MG, QD
     Route: 065
     Dates: start: 201803
  16. SPIRIVA [Concomitant]
     Active Substance: TIOTROPIUM BROMIDE MONOHYDRATE
     Indication: PRODUCT USED FOR UNKNOWN INDICATION
     Dosage: 1 DF, QD (1-0-0)
     Route: 048
     Dates: start: 2017
  17. TOREM [Concomitant]
     Active Substance: TORSEMIDE
     Dosage: 10 MG, QD
     Route: 065
  18. SYMBICORT [Concomitant]
     Active Substance: BUDESONIDE\FORMOTEROL FUMARATE DIHYDRATE
     Dosage: 1 DF, BID  (1-0-1)
     Route: 048
     Dates: start: 2017
  19. FOLIC ACID. [Concomitant]
     Active Substance: FOLIC ACID
     Indication: PRODUCT USED FOR UNKNOWN INDICATION
     Dosage: 9.4 MG, QW
     Route: 065
     Dates: end: 201803
  20. PANTOPRAZOLE [Concomitant]
     Active Substance: PANTOPRAZOLE
     Indication: PRODUCT USED FOR UNKNOWN INDICATION
     Dosage: 40 MG, QD (20MG-0MG-20MG)
     Route: 048
  21. PREDNISOLONE. [Concomitant]
     Active Substance: PREDNISOLONE
     Indication: HYPERSENSITIVITY PNEUMONITIS
     Dosage: 20 MG, QD
     Route: 065
     Dates: end: 2018
  22. CLEXANE [Concomitant]
     Active Substance: ENOXAPARIN SODIUM
     Indication: SEGMENTED HYALINISING VASCULITIS
     Dosage: 0.8 ML, BID
     Route: 065
  23. PARACETAMOL B. BRAUN [Suspect]
     Active Substance: ACETAMINOPHEN
     Indication: PRODUCT USED FOR UNKNOWN INDICATION
     Dosage: 1 G, QID
     Route: 042
     Dates: start: 20180430, end: 20180501
  24. NOVALGIN [Concomitant]
     Indication: PRODUCT USED FOR UNKNOWN INDICATION
     Dosage: 90 DRP, QD (30-30-30)
     Route: 048
  25. TOREM [Concomitant]
     Active Substance: TORSEMIDE
     Indication: PRODUCT USED FOR UNKNOWN INDICATION
     Dosage: 5 MG, QD (5-0-0)
     Route: 048
  26. PREDNISOLONE. [Concomitant]
     Active Substance: PREDNISOLONE
     Dosage: 10 MG, QD
     Route: 065
     Dates: start: 2018
  27. BUDENOFALK [Concomitant]
     Active Substance: BUDESONIDE
     Indication: PRODUCT USED FOR UNKNOWN INDICATION
     Dosage: 3 G, BID
     Route: 065
  28. LYRICA [Concomitant]
     Active Substance: PREGABALIN
     Indication: PRODUCT USED FOR UNKNOWN INDICATION
     Dosage: 25 MG, QD (DAILY DOSE: 25 MG MILLGRAM(S) EVERY DAYS)
     Route: 048
  29. NEBILET [Concomitant]
     Active Substance: NEBIVOLOL
     Indication: SINUS TACHYCARDIA
     Dosage: 2.5 MG, QD
     Route: 048
  30. TILIDIN [Concomitant]
     Active Substance: NALOXONE HYDROCHLORIDE\TILIDINE HYDROCHLORIDE
     Indication: PAIN IN EXTREMITY
     Dosage: UNK
     Route: 065

REACTIONS (16)
  - Liver disorder [Fatal]
  - Ulcer [Unknown]
  - Electrolyte imbalance [Fatal]
  - Skin ulcer [Unknown]
  - Tachycardia [Unknown]
  - Syncope [Recovered/Resolved]
  - Peripheral swelling [Unknown]
  - Skin haemorrhage [Recovered/Resolved]
  - Hypokalaemia [Fatal]
  - Hepatic failure [Fatal]
  - Hyponatraemia [Fatal]
  - Hypoglycaemia [Unknown]
  - Hyperhidrosis [Unknown]
  - Dyspnoea [Unknown]
  - Hepatic enzyme increased [Fatal]
  - Loss of consciousness [Recovered/Resolved]

NARRATIVE: CASE EVENT DATE: 2018
